FAERS Safety Report 5745110-1 (Version None)
Quarter: 2008Q2

REPORT INFORMATION
  Report Type: 
  Country: None (occurrence: None)
  Receive Date: 20080521
  Receipt Date: 20080516
  Transmission Date: 20081010
  Serious: Yes (Other)
  Sender: FDA-Public Use
  Company Number: PHEH2008US04655

PATIENT
  Sex: Female

DRUGS (1)
  1. BELLERGAL-S [Suspect]

REACTIONS (2)
  - CEREBROVASCULAR ACCIDENT [None]
  - HOT FLUSH [None]
